FAERS Safety Report 4262245-3 (Version None)
Quarter: 2004Q1

REPORT INFORMATION
  Report Type: 
  Country: None (occurrence: None)
  Receive Date: 20040102
  Receipt Date: 20031222
  Transmission Date: 20041129
  Serious: Yes (Hospitalization, Other)
  Sender: FDA-Public Use
  Company Number: PHBS2003JP14451

PATIENT
  Age: 32 Year
  Sex: Female

DRUGS (38)
  1. VOLTAREN [Suspect]
     Indication: ABDOMINAL PAIN
     Route: 054
     Dates: start: 20010131, end: 20010202
  2. VOLTAREN [Suspect]
     Dosage: 25 MG, ONCE/SINGLE
     Route: 054
     Dates: start: 20010903, end: 20010903
  3. PRIMPERAN TAB [Concomitant]
     Dosage: 3 DF/DAY
     Route: 048
     Dates: start: 20010105
  4. NIFLAN [Concomitant]
     Indication: UPPER RESPIRATORY TRACT INFLAMMATION
     Dosage: 225 MG, TID
     Route: 048
     Dates: start: 20010105
  5. NIFLAN [Concomitant]
     Dosage: 225 MG, TID
     Route: 048
     Dates: start: 20010625
  6. NIFLAN [Concomitant]
     Dosage: 225 MG, TID
     Route: 048
     Dates: start: 20010903, end: 20010901
  7. ASVERIN [Concomitant]
     Dosage: 3 DF/DAY
     Route: 048
     Dates: start: 20010105
  8. FLOMOX [Concomitant]
     Indication: UPPER RESPIRATORY TRACT INFLAMMATION
     Dosage: 3 DF/DAY
     Route: 048
     Dates: start: 20010105
  9. FLOMOX [Concomitant]
     Dosage: 3 DF/DAY
     Route: 048
     Dates: start: 20010625
  10. FLOMOX [Concomitant]
     Dosage: 3 DF/DAY
     Route: 048
     Dates: start: 20030903
  11. SOLDEM 1 [Concomitant]
     Route: 042
     Dates: start: 20010106
  12. SOLDEM 1 [Concomitant]
     Dates: start: 20010221
  13. ADONA [Concomitant]
     Dates: start: 20010106
  14. FOSMICIN [Concomitant]
     Dates: start: 20010106
  15. FOSMICIN [Concomitant]
     Dates: start: 20010221
  16. PURSENNID [Concomitant]
     Indication: CONSTIPATION
     Route: 048
     Dates: start: 20010116, end: 20010901
  17. DUVADILAN [Concomitant]
     Indication: ABORTION THREATENED
     Dosage: 30 MG, TID
     Route: 048
     Dates: start: 20010131
  18. DUVADILAN [Concomitant]
     Dosage: 30 MG, TID
     Route: 048
     Dates: start: 20010512
  19. DUVADILAN [Concomitant]
     Dosage: 30 MG, TID
     Route: 048
     Dates: start: 20010709
  20. NOSLAN [Concomitant]
     Indication: RHINITIS ALLERGIC
     Dates: start: 20010219
  21. LOXONIN [Concomitant]
     Indication: HEADACHE
     Dosage: 3 DF/DAY
     Route: 048
     Dates: start: 20010219
  22. PRIMPERAN TAB [Concomitant]
     Dosage: 3 DF/DAY
     Route: 048
     Dates: start: 20010221
  23. PHENOBAL [Concomitant]
     Dates: start: 20010221
  24. RINDERON [Concomitant]
     Dates: start: 20010221
  25. PENTAZOCINE [Concomitant]
     Dates: start: 20010221
  26. ATARAX [Concomitant]
     Dates: start: 20010221
  27. STROCAIN [Concomitant]
     Dosage: 3 DF/DAY
     Dates: start: 20010221
  28. SEDES G [Concomitant]
     Indication: HEADACHE
     Dates: start: 20010323
  29. GASTER [Concomitant]
     Dosage: 2 DF/DAY
     Route: 048
     Dates: start: 20010709
  30. RINDERON-VG [Concomitant]
     Indication: PRURIGO
     Dates: start: 20010709
  31. RITODRINE HCL IN DEXTROSE 5% IN PLASTIC CONTAINER [Concomitant]
     Indication: ABORTION THREATENED
     Dosage: 3 DF/DAY
     Route: 048
     Dates: start: 20010723
  32. SELBEX [Concomitant]
     Dosage: 3 DF/DAY
     Route: 048
     Dates: start: 20010625
  33. SELBEX [Concomitant]
     Dosage: 3 DF/DAY
     Route: 048
     Dates: start: 20030903
  34. MYLIS [Concomitant]
     Indication: CERVICAL RIB
     Route: 067
     Dates: start: 20010817
  35. LECICARBON [Concomitant]
     Dates: start: 20010817
  36. ADESTAN [Concomitant]
     Dates: start: 20010801
  37. FUNGIZONE [Concomitant]
     Dosage: 3 DF/DAY
     Route: 048
     Dates: start: 20010801
  38. LAMISIL [Suspect]
     Indication: SYSTEMIC MYCOSIS
     Dosage: UNK, UNK
     Dates: start: 20010801

REACTIONS (19)
  - ABORTION THREATENED [None]
  - BRADYCARDIA [None]
  - CAESAREAN SECTION [None]
  - CERVICAL INCOMPETENCE [None]
  - CONSTIPATION [None]
  - CYSTITIS [None]
  - DRUG EXPOSURE DURING PREGNANCY [None]
  - DYSURIA [None]
  - HYPEREMESIS GRAVIDARUM [None]
  - HYPOTENSION [None]
  - INTRA-UTERINE DEATH [None]
  - MALAISE [None]
  - MATERNAL DRUGS AFFECTING FOETUS [None]
  - PREMATURE RUPTURE OF MEMBRANES [None]
  - PRURIGO [None]
  - PYREXIA [None]
  - URINARY TRACT INFECTION [None]
  - VAGINAL CANDIDIASIS [None]
  - VAGINAL HAEMORRHAGE [None]
